FAERS Safety Report 5114648-2 (Version None)
Quarter: 2006Q3

REPORT INFORMATION
  Report Type: 
  Country: None (occurrence: None)
  Receive Date: 20060926
  Receipt Date: 20060914
  Transmission Date: 20061208
  Serious: Yes (Death)
  Sender: FDA-Public Use
  Company Number: US-JNJFOC-20040501667

PATIENT
  Sex: Male
  Weight: 96.16 kg

DRUGS (8)
  1. REMICADE [Suspect]
     Indication: RHEUMATOID ARTHRITIS
     Route: 042
  2. METHOTREXATE [Concomitant]
  3. VIOXX [Concomitant]
  4. FOLIC ACID [Concomitant]
  5. ACIPHEX [Concomitant]
  6. PREDNISONE TAB [Concomitant]
  7. VICODIN [Concomitant]
  8. TYLENOL [Concomitant]

REACTIONS (1)
  - RESPIRATORY TRACT CARCINOMA IN SITU [None]
